FAERS Safety Report 21003156 (Version 1)
Quarter: 2022Q2

REPORT INFORMATION
  Report Type: Report from Study
  Country: US (occurrence: US)
  Receive Date: 20220624
  Receipt Date: 20220624
  Transmission Date: 20220720
  Serious: Yes (Death)
  Sender: FDA-Public Use
  Company Number: US-BAYER-2022A084400

PATIENT
  Age: 14 Year

DRUGS (2)
  1. ASPIRIN [Interacting]
     Active Substance: ASPIRIN
     Indication: Congestive cardiomyopathy
     Dosage: UNK
  2. WARFARIN [Interacting]
     Active Substance: WARFARIN
     Dosage: UNK

REACTIONS (8)
  - Labelled drug-drug interaction medication error [Fatal]
  - Cerebellar haemorrhage [Fatal]
  - Intraventricular haemorrhage [Fatal]
  - Neurological procedural complication [Fatal]
  - Headache [None]
  - Nausea [None]
  - Mental status changes [None]
  - Off label use [None]
